FAERS Safety Report 7093889-1 (Version None)
Quarter: 2010Q4

REPORT INFORMATION
  Report Type: 
  Country: None (occurrence: None)
  Receive Date: 20101110
  Receipt Date: 20101011
  Transmission Date: 20110411
  Serious: Yes (Hospitalization)
  Sender: FDA-Public Use
  Company Number: US-BAYER-201021132NA

PATIENT
  Age: 15 Year
  Sex: Female
  Weight: 91 kg

DRUGS (12)
  1. YAZ [Suspect]
     Indication: PRODUCT USED FOR UNKNOWN INDICATION
     Route: 048
     Dates: start: 20040301
  2. YASMIN [Suspect]
     Indication: POLYCYSTIC OVARIES
     Route: 048
     Dates: start: 20040301, end: 20081201
  3. OCELLA [Suspect]
     Indication: POLYCYSTIC OVARIES
     Route: 048
     Dates: start: 20040301, end: 20081201
  4. MILK OF MAGNESIA TAB [Concomitant]
     Indication: GASTROINTESTINAL DISORDER
  5. SENNA LAXATIVE [Concomitant]
     Indication: GASTROINTESTINAL DISORDER
  6. TYLENOL [Concomitant]
     Indication: HEADACHE
  7. ADVIL [Concomitant]
     Indication: DYSMENORRHOEA
  8. ALEVE (CAPLET) [Concomitant]
     Indication: PAIN
  9. ZANTAC [Concomitant]
     Indication: GASTROOESOPHAGEAL REFLUX DISEASE
  10. GLUCOPHAGE [Concomitant]
     Route: 065
  11. PHENERGAN [Concomitant]
  12. ZYRTEC [Concomitant]

REACTIONS (7)
  - ABDOMINAL PAIN [None]
  - ABDOMINAL PAIN UPPER [None]
  - CHOLECYSTITIS CHRONIC [None]
  - CHOLESTEROSIS [None]
  - NAUSEA [None]
  - PYREXIA [None]
  - WHITE BLOOD CELL COUNT INCREASED [None]
